FAERS Safety Report 15739827 (Version 3)
Quarter: 2018Q4

REPORT INFORMATION
  Report Type: Spontaneous
  Country: HU (occurrence: HU)
  Receive Date: 20181219
  Receipt Date: 20181227
  Transmission Date: 20190205
  Serious: No
  Sender: FDA-Public Use
  Company Number: HU-PFIZER INC-2018516434

PATIENT
  Sex: Male

DRUGS (1)
  1. SULFASALAZINE. [Suspect]
     Active Substance: SULFASALAZINE
     Indication: JUVENILE PSORIATIC ARTHRITIS
     Dosage: UNK

REACTIONS (1)
  - Product use in unapproved indication [Unknown]
